FAERS Safety Report 13805897 (Version 1)
Quarter: 2017Q3

REPORT INFORMATION
  Report Type: Spontaneous
  Country: US (occurrence: US)
  Receive Date: 20170728
  Receipt Date: 20170728
  Transmission Date: 20171127
  Serious: No
  Sender: FDA-Public Use
  Company Number: US-BAYER-2017-132447

PATIENT
  Age: 93 Year
  Sex: Male
  Weight: 65 kg

DRUGS (7)
  1. TRIAMTERENE. [Concomitant]
     Active Substance: TRIAMTERENE
     Dosage: 37.5 MG, UNK
  2. CENTRUM SILVER [Concomitant]
     Active Substance: MINERALS\VITAMINS
  3. MIRALAX [Suspect]
     Active Substance: POLYETHYLENE GLYCOL 3350
     Indication: GASTROINTESTINAL DISORDER
     Dosage: UNK 8/9 GR
  4. VITAMIIN C [Concomitant]
     Active Substance: ASCORBIC ACID
     Dosage: UNK UNK, ONCE
  5. ELOCON [Concomitant]
     Active Substance: MOMETASONE FUROATE
  6. VIDAZA [Concomitant]
     Active Substance: AZACITIDINE
  7. MIRALAX [Suspect]
     Active Substance: POLYETHYLENE GLYCOL 3350
     Indication: GASTROINTESTINAL DISORDER
     Dosage: UNK, UNK
     Route: 048

REACTIONS (7)
  - Incorrect drug administration duration [Unknown]
  - Frequent bowel movements [Unknown]
  - Constipation [Unknown]
  - Product use issue [Unknown]
  - Diarrhoea [Unknown]
  - Underdose [Unknown]
  - Circumstance or information capable of leading to device use error [Unknown]
